FAERS Safety Report 11220872 (Version 1)
Quarter: 2015Q2

REPORT INFORMATION
  Report Type: Report from Study
  Country: JP (occurrence: JP)
  Receive Date: 20150626
  Receipt Date: 20150626
  Transmission Date: 20150821
  Serious: Yes (Death, Life-Threatening)
  Sender: FDA-Public Use
  Company Number: JP-ABBVIE-10P-087-0623400-00

PATIENT
  Age: 70 Year
  Sex: Female

DRUGS (31)
  1. HUMIRA [Suspect]
     Active Substance: ADALIMUMAB
     Indication: RHEUMATOID ARTHRITIS
     Route: 058
     Dates: start: 20090807, end: 20091126
  2. SALAZOSULFAPYRIDINE [Concomitant]
     Active Substance: SULFASALAZINE
     Indication: RHEUMATOID ARTHRITIS
     Route: 048
     Dates: start: 20081016, end: 20100226
  3. GLIMEPIRIDE. [Concomitant]
     Active Substance: GLIMEPIRIDE
     Indication: PRODUCT USED FOR UNKNOWN INDICATION
     Route: 048
     Dates: start: 20081016, end: 20100226
  4. CANDESARTAN CILEXETIL. [Concomitant]
     Active Substance: CANDESARTAN CILEXETIL
     Indication: PRODUCT USED FOR UNKNOWN INDICATION
     Route: 048
     Dates: start: 20081016, end: 20100226
  5. FLURBIPROFEN. [Concomitant]
     Active Substance: FLURBIPROFEN
     Indication: RHEUMATOID ARTHRITIS
     Dosage: 1 SHEET WHEN PAINFUL
     Route: 062
     Dates: start: 20091016, end: 20100226
  6. SENNOSIDE [Concomitant]
     Active Substance: SENNOSIDES
     Indication: ADVERSE EVENT
     Route: 048
     Dates: start: 20080805, end: 20100226
  7. ASCORBIC ACID/CALCIUM PANTOTHENATE [Concomitant]
     Indication: ADVERSE EVENT
  8. DICLOFENAC SODIUM. [Concomitant]
     Active Substance: DICLOFENAC SODIUM
     Dosage: 1 SHEET WHEN PAINFUL
     Route: 062
     Dates: start: 20081016, end: 20100226
  9. REBAMIPIDE [Concomitant]
     Active Substance: REBAMIPIDE
     Indication: PROPHYLAXIS
     Route: 048
     Dates: start: 20090319, end: 20100226
  10. CELECOXIB. [Concomitant]
     Active Substance: CELECOXIB
     Indication: RHEUMATOID ARTHRITIS
     Route: 048
     Dates: start: 20090319, end: 20100226
  11. LANSOPRAZOLE. [Concomitant]
     Active Substance: LANSOPRAZOLE
     Indication: PROPHYLAXIS
     Route: 048
     Dates: start: 20081016, end: 20100226
  12. DICLOFENAC SODIUM. [Concomitant]
     Active Substance: DICLOFENAC SODIUM
     Indication: RHEUMATOID ARTHRITIS
     Route: 048
     Dates: start: 20081016, end: 20100226
  13. REBAMIPIDE [Concomitant]
     Active Substance: REBAMIPIDE
     Indication: ADVERSE EVENT
     Dosage: WHEN PAINFUL
     Route: 048
     Dates: start: 20081016, end: 20100226
  14. LANSOPRAZOLE. [Concomitant]
     Active Substance: LANSOPRAZOLE
     Indication: ADVERSE EVENT
  15. MISOPROSTOL. [Concomitant]
     Active Substance: MISOPROSTOL
     Indication: PROPHYLAXIS
  16. ZOLPIDEM TARTRATE. [Concomitant]
     Active Substance: ZOLPIDEM TARTRATE
     Indication: PRODUCT USED FOR UNKNOWN INDICATION
     Route: 048
     Dates: start: 20080805, end: 20100226
  17. ASCORBIC ACID/CALCIUM PANTOTHENATE [Concomitant]
     Indication: PROPHYLAXIS
     Route: 048
     Dates: start: 20081016, end: 20100226
  18. SODIUM RISEDRONATE HYDRATE [Concomitant]
     Indication: ADVERSE EVENT
  19. HUMIRA [Suspect]
     Active Substance: ADALIMUMAB
     Route: 058
     Dates: start: 20100208, end: 20100222
  20. MOSAPRIDE CITRATE [Concomitant]
     Active Substance: MOSAPRIDE CITRATE
     Indication: ADVERSE EVENT
  21. SODIUM RISEDRONATE HYDRATE [Concomitant]
     Indication: PROPHYLAXIS
     Dosage: 17.5MG/WEEK
     Route: 048
     Dates: start: 20081016, end: 20100226
  22. ETIZOLAM [Concomitant]
     Active Substance: ETIZOLAM
     Indication: PRODUCT USED FOR UNKNOWN INDICATION
     Route: 048
     Dates: start: 20081016, end: 20100226
  23. BEZAFIBRATE [Concomitant]
     Active Substance: BEZAFIBRATE
     Indication: PRODUCT USED FOR UNKNOWN INDICATION
     Route: 048
     Dates: start: 20081016, end: 20100226
  24. PREDNISOLONE. [Concomitant]
     Active Substance: PREDNISOLONE
     Indication: RHEUMATOID ARTHRITIS
     Route: 048
     Dates: start: 20081016, end: 20100226
  25. AMLODIPINE BESILATE [Concomitant]
     Active Substance: AMLODIPINE BESYLATE
     Indication: PRODUCT USED FOR UNKNOWN INDICATION
     Route: 048
     Dates: start: 20081016, end: 20100226
  26. EPERISONE HYDROCHLORIDE [Concomitant]
     Active Substance: EPERISONE HYDROCHLORIDE
     Indication: PROPHYLAXIS
     Route: 048
     Dates: start: 20081016, end: 20100226
  27. EPERISONE HYDROCHLORIDE [Concomitant]
     Active Substance: EPERISONE HYDROCHLORIDE
     Indication: ADVERSE EVENT
  28. MISOPROSTOL. [Concomitant]
     Active Substance: MISOPROSTOL
     Indication: ADVERSE EVENT
     Dosage: 300 MICROGRAMDAILY DOSE
     Route: 048
     Dates: start: 20081016, end: 20100226
  29. MOSAPRIDE CITRATE [Concomitant]
     Active Substance: MOSAPRIDE CITRATE
     Indication: PROPHYLAXIS
     Route: 048
     Dates: start: 20081016, end: 20100226
  30. SENNOSIDE [Concomitant]
     Active Substance: SENNOSIDES
     Indication: PROPHYLAXIS
  31. GIMERACIL W/OTERACIL POTASSIUM/TEGAFUR [Concomitant]
     Active Substance: GIMERACIL\OTERACIL\TEGAFUR
     Indication: METASTASES TO LIVER
     Dosage: ADMINISTERED FOR 2 WEEKS FOLLOWED BY 1 WEEK REST PERIOD
     Route: 048
     Dates: start: 20090310, end: 20091130

REACTIONS (5)
  - Jaundice [Not Recovered/Not Resolved]
  - Bile duct cancer stage III [Fatal]
  - Metastases to liver [Fatal]
  - Malignant neoplasm progression [Fatal]
  - Bile duct cancer [Fatal]

NARRATIVE: CASE EVENT DATE: 20091125
